FAERS Safety Report 11215923 (Version 2)
Quarter: 2015Q3

REPORT INFORMATION
  Report Type: Spontaneous
  Country: RU (occurrence: RU)
  Receive Date: 20150624
  Receipt Date: 20150702
  Transmission Date: 20151125
  Serious: Yes (Life-Threatening, Hospitalization, Other)
  Sender: FDA-Public Use
  Company Number: RU-ASTRAZENECA-2015SE60433

PATIENT
  Age: 24497 Day
  Sex: Male
  Weight: 78 kg

DRUGS (3)
  1. BRILINTA [Suspect]
     Active Substance: TICAGRELOR
     Indication: ACUTE CORONARY SYNDROME
     Route: 048
  2. BRILINTA [Suspect]
     Active Substance: TICAGRELOR
     Indication: ACUTE CORONARY SYNDROME
     Route: 048
     Dates: start: 20150612, end: 20150613
  3. BRILINTA [Suspect]
     Active Substance: TICAGRELOR
     Indication: ACUTE CORONARY SYNDROME
     Route: 048
     Dates: start: 20150611

REACTIONS (6)
  - Ischaemic stroke [Unknown]
  - Coma [Unknown]
  - Intentional product misuse [Unknown]
  - Angina pectoris [Unknown]
  - Vascular stent thrombosis [Recovering/Resolving]
  - Ventricular fibrillation [Unknown]

NARRATIVE: CASE EVENT DATE: 20150612
